FAERS Safety Report 25625347 (Version 1)
Quarter: 2025Q3

REPORT INFORMATION
  Report Type: Spontaneous
  Country: US (occurrence: US)
  Receive Date: 20250731
  Receipt Date: 20250731
  Transmission Date: 20251021
  Serious: No
  Sender: MERCK SHARP & DOHME LLC
  Company Number: US-009507513-2307960

PATIENT
  Age: 25 Year
  Sex: Female
  Weight: 54.4 kg

DRUGS (11)
  1. SOTATERCEPT [Suspect]
     Active Substance: SOTATERCEPT
  2. SOTATERCEPT [Suspect]
     Active Substance: SOTATERCEPT
  3. SOTATERCEPT [Suspect]
     Active Substance: SOTATERCEPT
  4. SOTATERCEPT [Suspect]
     Active Substance: SOTATERCEPT
  5. Wellbutrin sr (Bupropion hydrochloride) [Concomitant]
  6. OPSUMIT [Concomitant]
     Active Substance: MACITENTAN
  7. REMODULIN [Concomitant]
     Active Substance: TREPROSTINIL
     Indication: Pulmonary arterial hypertension
     Route: 041
     Dates: start: 20240226
  8. Levalbuterol tartrate hfa (Levosalbutamol tartrate) [Concomitant]
  9. REVATIO [Concomitant]
     Active Substance: SILDENAFIL CITRATE
  10. Tylenol extra strength (Paracetamol) [Concomitant]
  11. GABAPENTIN [Concomitant]
     Active Substance: GABAPENTIN

REACTIONS (1)
  - Product dose omission issue [Unknown]

NARRATIVE: CASE EVENT DATE: 20250625
